FAERS Safety Report 4817326-X (Version None)
Quarter: 2005Q4

REPORT INFORMATION
  Report Type: 
  Country: None (occurrence: None)
  Receive Date: 20051031
  Receipt Date: 20051019
  Transmission Date: 20060501
  Serious: Yes (Other)
  Sender: FDA-Public Use
  Company Number: 218768

PATIENT
  Age: 88 Year
  Sex: Female

DRUGS (1)
  1. RITUXAN [Suspect]
     Indication: LYMPHOMA
     Dates: start: 20050601

REACTIONS (3)
  - LEUKOPENIA [None]
  - NEUTROPHIL COUNT DECREASED [None]
  - THERAPEUTIC RESPONSE DECREASED [None]
